FAERS Safety Report 11251742 (Version 2)
Quarter: 2015Q3

REPORT INFORMATION
  Report Type: Spontaneous
  Country: US (occurrence: US)
  Receive Date: 20150708
  Receipt Date: 20150708
  Transmission Date: 20151125
  Serious: Yes (Other)
  Sender: FDA-Public Use
  Company Number: US-ELI_LILLY_AND_COMPANY-US201207008338

PATIENT
  Sex: Female

DRUGS (5)
  1. ALIMTA [Suspect]
     Active Substance: PEMETREXED DISODIUM
     Indication: MESOTHELIOMA
     Dosage: 500 MG/M2, UNK
     Route: 042
  2. GEMZAR [Suspect]
     Active Substance: GEMCITABINE HYDROCHLORIDE
     Indication: MESOTHELIOMA
     Route: 042
  3. CISPLATIN. [Concomitant]
     Active Substance: CISPLATIN
  4. ZOMETA [Concomitant]
     Active Substance: ZOLEDRONIC ACID
  5. CARBOPLATIN. [Concomitant]
     Active Substance: CARBOPLATIN
     Indication: MESOTHELIOMA
     Route: 042

REACTIONS (3)
  - Blood creatinine increased [Recovered/Resolved]
  - Off label use [Recovered/Resolved]
  - Neoplasm progression [Unknown]
